FAERS Safety Report 9139364 (Version 1)
Quarter: 2013Q1

REPORT INFORMATION
  Report Type: Spontaneous
  Country: US (occurrence: US)
  Receive Date: 20130305
  Receipt Date: 20130305
  Transmission Date: 20140127
  Serious: Yes (Hospitalization)
  Sender: FDA-Public Use
  Company Number: US-ELI_LILLY_AND_COMPANY-US201303000947

PATIENT
  Age: 42 Year
  Sex: Female
  Weight: 86.62 kg

DRUGS (3)
  1. HUMALOG LISPRO [Suspect]
     Route: 058
  2. HUMALOG LISPRO [Suspect]
     Dosage: 15 U, SINGLE
     Dates: start: 20130218, end: 20130218
  3. LANTUS [Concomitant]
     Dosage: 20 U, SINGLE
     Dates: start: 20130218, end: 20130218

REACTIONS (2)
  - Hyperglycaemia [Not Recovered/Not Resolved]
  - Blood ketone body increased [Unknown]
